FAERS Safety Report 5737641-5 (Version None)
Quarter: 2008Q2

REPORT INFORMATION
  Report Type: 
  Country: None (occurrence: None)
  Receive Date: 20080507
  Receipt Date: 20070503
  Transmission Date: 20081010
  Serious: Yes (Hospitalization)
  Sender: FDA-Public Use
  Company Number: 495941

PATIENT
  Age: 67 Year
  Sex: Male

DRUGS (11)
  1. NAPROXEN [Suspect]
     Indication: DRUG USE FOR UNKNOWN INDICATION
  2. FELDENE [Suspect]
     Indication: DRUG USE FOR UNKNOWN INDICATION
  3. ACE INHIBITOR (ANGIOTENSIN CONVERTING ENZYME INHIBITOR NOS) [Suspect]
     Indication: DRUG USE FOR UNKNOWN INDICATION
  4. MDX-010 (IPILIMUMAB) [Suspect]
     Indication: MALIGNANT MELANOMA
     Dosage: 90 ML 1 PER ONE DOSE INTRAVENOUS
     Route: 042
     Dates: start: 20070301, end: 20070322
  5. GP100 POLYPEPTIDE VACCINE NOS (GP100 POLYPEPTIDE VACCINE NOS) [Suspect]
     Indication: MALIGNANT MELANOMA
     Dosage: 2 ML 1 PER ONE DOSE
     Dates: start: 20070301, end: 20070322
  6. PLACEBO (PLACEBO) [Suspect]
     Indication: DRUG USE FOR UNKNOWN INDICATION
     Dosage: 2 ML
     Dates: start: 20070301, end: 20070322
  7. ASPIRIN [Concomitant]
  8. LISINOPRIL [Concomitant]
  9. HYDROCHLOROTHIAZIDE/TRIAMTERENE (HYDROCHLOROTHIAZIDE/TRIAMTERENE) [Concomitant]
  10. NORVASC [Concomitant]
  11. PENICILLIN [Concomitant]

REACTIONS (2)
  - HYPOTENSION [None]
  - RENAL FAILURE [None]
